FAERS Safety Report 11495801 (Version 1)
Quarter: 2015Q3

REPORT INFORMATION
  Report Type: Spontaneous
  Country: US (occurrence: US)
  Receive Date: 20150911
  Receipt Date: 20150911
  Transmission Date: 20151125
  Serious: No
  Sender: FDA-Public Use
  Company Number: US-PFIZER INC-2015293586

PATIENT
  Age: 4 Year
  Sex: Female
  Weight: 25 kg

DRUGS (3)
  1. CLARITIN [Suspect]
     Active Substance: LORATADINE
     Indication: NASAL CONGESTION
     Dosage: 5 MG, 1X/DAY
     Route: 048
     Dates: start: 2015
  2. JUNIOR STRENGTH ADVIL [Suspect]
     Active Substance: IBUPROFEN
     Indication: VIRAL INFECTION
  3. JUNIOR STRENGTH ADVIL [Suspect]
     Active Substance: IBUPROFEN
     Indication: PYREXIA
     Dosage: ONE CHEWABLE TABLET, TWICE A DAY FOR THREE CONSECUTIVE DAYS
     Route: 048
     Dates: start: 2015

REACTIONS (4)
  - Swollen tongue [Recovered/Resolved]
  - Speech disorder [Recovered/Resolved]
  - Drug hypersensitivity [Recovered/Resolved]
  - Expired product administered [Recovered/Resolved]

NARRATIVE: CASE EVENT DATE: 2015
